FAERS Safety Report 4382126-4 (Version None)
Quarter: 2004Q2

REPORT INFORMATION
  Report Type: 
  Country: None (occurrence: None)
  Receive Date: 20040603
  Receipt Date: 20030609
  Transmission Date: 20050107
  Serious: Yes (Hospitalization, Other)
  Sender: FDA-Public Use
  Company Number: 200312586US

PATIENT
  Age: 77 Year
  Sex: Male
  Weight: 83 kg

DRUGS (18)
  1. LOVENOX [Suspect]
     Indication: DEEP VEIN THROMBOSIS
     Dosage: 80 MG BID SC
     Route: 058
     Dates: start: 20030312, end: 20030313
  2. LOVENOX [Suspect]
     Indication: PULMONARY EMBOLISM
     Dosage: 80 MG BID SC
     Route: 058
     Dates: start: 20030312, end: 20030313
  3. TRAZODONE HCL [Concomitant]
  4. WARFARIN SODIUM [Concomitant]
  5. VENLAFAXINE [Concomitant]
  6. SIMETHICONE [Concomitant]
  7. RABEPRAZOLE SODIUM [Concomitant]
  8. POTASSIUM CHLORIDE [Concomitant]
  9. NITROGLYCERN [Concomitant]
  10. METOPROLOL TARTRATE [Concomitant]
  11. LOVASTATIN [Concomitant]
  12. GLIPIZIDE [Concomitant]
  13. IRON SULFATETHIAMIN COMPOUND TAB [Concomitant]
  14. DOXYCYCLINE [Concomitant]
  15. DIGOXIN [Concomitant]
  16. ASPIRIN [Concomitant]
  17. TYLENOL [Concomitant]
  18. BRIMONIDINE [Concomitant]

REACTIONS (4)
  - ABDOMINAL PAIN [None]
  - HAEMATOCRIT DECREASED [None]
  - HAEMATOMA [None]
  - MUSCLE HAEMORRHAGE [None]
